FAERS Safety Report 15579052 (Version 7)
Quarter: 2019Q1

REPORT INFORMATION
  Report Type: Report from Study
  Country: US (occurrence: US)
  Receive Date: 20181102
  Receipt Date: 20190308
  Transmission Date: 20190417
  Serious: Yes (Other)
  Sender: FDA-Public Use
  Company Number: US-PFIZER INC-2018385329

PATIENT
  Age: 52 Year
  Sex: Female

DRUGS (3)
  1. IBRANCE [Suspect]
     Active Substance: PALBOCICLIB
     Indication: BREAST CANCER FEMALE
     Dosage: 125 MG, CYCLIC (DAILY, 21 DAYS ON AND 7 DAYS OFF)
     Route: 048
     Dates: start: 20180914, end: 20181004
  2. IBRANCE [Suspect]
     Active Substance: PALBOCICLIB
     Dosage: 100 MG, CYCLIC (DAILY 21 DAYS ON AND 7 DAYS OFF)
     Route: 048
     Dates: start: 20181018
  3. EXEMESTANE. [Concomitant]
     Active Substance: EXEMESTANE
     Dosage: UNK, DAILY

REACTIONS (27)
  - Leukopenia [Recovering/Resolving]
  - Upper respiratory tract infection [Unknown]
  - Throat clearing [Unknown]
  - Decreased appetite [Recovering/Resolving]
  - Pain in extremity [Not Recovered/Not Resolved]
  - Pruritus [Not Recovered/Not Resolved]
  - Abdominal pain [Unknown]
  - Diarrhoea [Unknown]
  - Pyrexia [Unknown]
  - Bone marrow failure [Recovering/Resolving]
  - Vomiting [Unknown]
  - Pain [Unknown]
  - Neutropenia [Recovering/Resolving]
  - Thrombocytopenia [Not Recovered/Not Resolved]
  - Productive cough [Unknown]
  - Headache [Recovering/Resolving]
  - Rash [Not Recovered/Not Resolved]
  - Urticaria [Recovering/Resolving]
  - Pneumonitis [Recovering/Resolving]
  - Cough [Recovering/Resolving]
  - Chills [Unknown]
  - Weight decreased [Recovering/Resolving]
  - Hot flush [Unknown]
  - Intentional product misuse [Unknown]
  - Hair growth abnormal [Unknown]
  - Fatigue [Unknown]
  - Tumour marker increased [Unknown]

NARRATIVE: CASE EVENT DATE: 2018
